FAERS Safety Report 7841143-X (Version None)
Quarter: 2011Q4

REPORT INFORMATION
  Report Type: 
  Country: None (occurrence: None)
  Receive Date: 20111025
  Receipt Date: 20111019
  Transmission Date: 20120403
  Serious: No
  Sender: FDA-Public Use
  Company Number: US-BAYER-2011-022810

PATIENT
  Sex: Male

DRUGS (3)
  1. TAZTIA XT [Concomitant]
     Dosage: 360 MG, QD
  2. PROCHLORPERAZINE [Concomitant]
     Dosage: 10 MG, PRN
  3. NEXAVAR [Suspect]
     Dosage: 400 MG, BID
     Route: 048
     Dates: start: 20110114, end: 20110228

REACTIONS (1)
  - DRUG INEFFECTIVE [None]
